FAERS Safety Report 8935489 (Version 1)
Quarter: 2012Q4

REPORT INFORMATION
  Report Type: Spontaneous
  Country: US (occurrence: None)
  Receive Date: 20121128
  Receipt Date: 20121128
  Transmission Date: 20130627
  Serious: Yes (Hospitalization)
  Sender: FDA-Public Use
  Company Number: None

PATIENT
  Age: 84 Year
  Sex: Female
  Weight: 50 kg

DRUGS (4)
  1. AGGRENOX [Suspect]
     Indication: TRANSIENT ISCHAEMIC ATTACK
     Dosage: PO
     Route: 048
  2. PRAVASTATIN [Concomitant]
  3. AMLODIPINE [Concomitant]
  4. TEKTURNA [Concomitant]

REACTIONS (6)
  - Headache [None]
  - Dizziness [None]
  - Subdural haematoma [None]
  - Subarachnoid haemorrhage [None]
  - Cerebrovascular accident [None]
  - Aphasia [None]
